FAERS Safety Report 17968719 (Version 1)
Quarter: 2020Q3

REPORT INFORMATION
  Report Type: Spontaneous
  Country: US (occurrence: US)
  Receive Date: 20200701
  Receipt Date: 20200701
  Transmission Date: 20201103
  Serious: Yes (Hospitalization, Other)
  Sender: FDA-Public Use
  Company Number: US-GLAXOSMITHKLINE-US2020GSK106134

PATIENT
  Age: 66 Year
  Sex: Female

DRUGS (2)
  1. METHYLPREDNISOLONE INTRAVENOUS [Suspect]
     Active Substance: METHYLPREDNISOLONE
     Indication: COVID-19
     Dosage: UNK
     Route: 042
  2. FLUTICASONE PROPIONATE+SALMETEROL XINAFOATE [Suspect]
     Active Substance: FLUTICASONE PROPIONATE\SALMETEROL XINAFOATE
     Indication: CHRONIC OBSTRUCTIVE PULMONARY DISEASE
     Dosage: UNK
     Route: 055

REACTIONS (16)
  - COVID-19 [Recovering/Resolving]
  - Bacteraemia [Recovered/Resolved]
  - Pyrexia [Recovered/Resolved]
  - Immunodeficiency [Unknown]
  - Pneumonia [Recovered/Resolved]
  - Fibrin D dimer increased [Unknown]
  - Oxygen saturation decreased [Recovering/Resolving]
  - Dizziness [Recovered/Resolved]
  - C-reactive protein increased [Unknown]
  - Fall [Recovered/Resolved]
  - Acute respiratory failure [Recovering/Resolving]
  - Blood lactate dehydrogenase increased [Unknown]
  - Dyspnoea [Recovering/Resolving]
  - Lung opacity [Recovered/Resolved]
  - SARS-CoV-2 test positive [Unknown]
  - Bacillus infection [Recovered/Resolved]
